FAERS Safety Report 5497833-X (Version None)
Quarter: 2007Q4

REPORT INFORMATION
  Report Type: 
  Country: None (occurrence: None)
  Receive Date: 20071025
  Receipt Date: 20070307
  Transmission Date: 20080405
  Serious: No
  Sender: FDA-Public Use
  Company Number: A0642191A

PATIENT
  Age: 65 Year
  Sex: Female

DRUGS (5)
  1. ADVAIR DISKUS 100/50 [Suspect]
     Indication: ASTHMA
     Dosage: 250MCG TWICE PER DAY
     Route: 055
     Dates: start: 20070104, end: 20070218
  2. LEXAPRO [Concomitant]
  3. XANAX [Concomitant]
  4. CADUET [Concomitant]
  5. ZANTAC [Concomitant]

REACTIONS (2)
  - DYSPHONIA [None]
  - LARYNGITIS [None]
